FAERS Safety Report 8614733-4 (Version None)
Quarter: 2012Q3

REPORT INFORMATION
  Report Type: 
  Country: None (occurrence: None)
  Receive Date: 20120823
  Receipt Date: 20120816
  Transmission Date: 20120928
  Serious: Yes (Death, Hospitalization)
  Sender: FDA-Public Use
  Company Number: DE-CELGENEUS-062-50794-12070382

PATIENT
  Age: 78 Year
  Sex: Male
  Weight: 115 kg

DRUGS (12)
  1. DEFERASIROX [Concomitant]
     Route: 065
  2. AMIODARONE HCL [Concomitant]
     Route: 065
  3. IMIPRA [Concomitant]
     Route: 065
  4. LENOGRASTIM [Concomitant]
     Route: 065
     Dates: start: 20120624, end: 20120629
  5. FORMOTEROL FUMARATE [Concomitant]
     Route: 065
  6. PREGABALIN [Concomitant]
     Route: 065
  7. FENTANYL [Concomitant]
     Route: 062
  8. PLATELETS [Concomitant]
     Route: 065
  9. VIDAZA [Suspect]
     Dosage: 75 MILLIGRAM/SQ. METER
     Route: 058
     Dates: start: 20120612, end: 20120620
  10. BISOPROLOL FUMARATE [Concomitant]
     Route: 065
  11. PANTOPRAZOLE [Concomitant]
     Route: 065
  12. TRANSFUSION [Concomitant]
     Route: 065

REACTIONS (3)
  - BRONCHITIS [None]
  - FEBRILE NEUTROPENIA [None]
  - PNEUMONIA [None]
